FAERS Safety Report 11873758 (Version 2)
Quarter: 2016Q1

REPORT INFORMATION
  Report Type: Spontaneous
  Country: CA (occurrence: CA)
  Receive Date: 20151229
  Receipt Date: 20160106
  Transmission Date: 20160526
  Serious: Yes (Other)
  Sender: FDA-Public Use
  Company Number: CA-ROCHE-1683768

PATIENT
  Sex: Male

DRUGS (3)
  1. XOLAIR [Suspect]
     Active Substance: OMALIZUMAB
     Route: 058
     Dates: start: 20150826
  2. XOLAIR [Suspect]
     Active Substance: OMALIZUMAB
     Route: 058
     Dates: start: 20150916
  3. XOLAIR [Suspect]
     Active Substance: OMALIZUMAB
     Indication: ASTHMA
     Route: 058
     Dates: start: 20150722

REACTIONS (6)
  - Otitis media acute [Not Recovered/Not Resolved]
  - Sinusitis [Unknown]
  - Rash [Recovered/Resolved]
  - Cough [Recovered/Resolved]
  - Wheezing [Unknown]
  - Injection site warmth [Recovered/Resolved]
